FAERS Safety Report 17400525 (Version 2)
Quarter: 2020Q1

REPORT INFORMATION
  Report Type: Report from Study
  Country: IT (occurrence: IT)
  Receive Date: 20200211
  Receipt Date: 20200227
  Transmission Date: 20200409
  Serious: Yes (Hospitalization)
  Sender: FDA-Public Use
  Company Number: IT-ROCHE-2544210

PATIENT
  Age: 51 Year
  Sex: Male

DRUGS (1)
  1. DIAZEPAM. [Suspect]
     Active Substance: DIAZEPAM
     Indication: MENTAL DISORDER
     Route: 048
     Dates: start: 20191227, end: 20191227

REACTIONS (3)
  - Sopor [Recovering/Resolving]
  - Medication error [Unknown]
  - Overdose [Unknown]

NARRATIVE: CASE EVENT DATE: 20191227
